FAERS Safety Report 4641453-3 (Version None)
Quarter: 2005Q2

REPORT INFORMATION
  Report Type: 
  Country: None (occurrence: None)
  Receive Date: 20050420
  Receipt Date: 20050420
  Transmission Date: 20051028
  Serious: No
  Sender: FDA-Public Use
  Company Number: None

PATIENT
  Age: 45 Year
  Sex: Female

DRUGS (1)
  1. LEVOFLOXACIN [Suspect]
     Dosage: 500MG  DAILY  INTRAVENOUS
     Route: 042
     Dates: start: 20050324, end: 20050326

REACTIONS (2)
  - LEUKOPENIA [None]
  - NEUTROPENIA [None]
